FAERS Safety Report 11192932 (Version 1)
Quarter: 2015Q2

REPORT INFORMATION
  Report Type: Report from Study
  Country: US (occurrence: None)
  Receive Date: 20150603
  Receipt Date: 20150603
  Transmission Date: 20150821
  Serious: No
  Sender: FDA-Public Use
  Company Number: 2015TASUS000692

PATIENT
  Age: 46 Year
  Sex: Male

DRUGS (14)
  1. ISONIAZID (ISONIAZID) [Concomitant]
     Active Substance: ISONIAZID
  2. RIFABUTINA (RIFABUTIN) [Concomitant]
  3. NORVIR [Concomitant]
     Active Substance: RITONAVIR
  4. HETLIOZ [Suspect]
     Active Substance: TASIMELTEON
     Indication: CIRCADIAN RHYTHM SLEEP DISORDER
     Route: 048
     Dates: start: 20150121, end: 2015
  5. PREZISTA (DARUNAVIR ETHANOLATE) [Concomitant]
  6. NUVIGIL [Concomitant]
     Active Substance: ARMODAFINIL
  7. METHYLPHENIDATE HCL (METHYLPHENIDATE HYDROCHLORIDE) [Concomitant]
  8. MOXIFLOXACIN (MOXIFLOXACIN) [Concomitant]
     Active Substance: MOXIFLOXACIN
  9. BACTRIM DS (SULFAMETHOXAZOLE, TRIMETHOPRIM) [Concomitant]
  10. ISENTRESS [Concomitant]
     Active Substance: RALTEGRAVIR POTASSIUM
  11. MIRABEGRON (MIRABEGRON) [Concomitant]
  12. EPIPEN [Concomitant]
     Active Substance: EPINEPHRINE
  13. TEMAZEPAM (TEMAZEPAM) [Concomitant]
     Active Substance: TEMAZEPAM
  14. PREDNISOLONE SODIUM PHOSPHATE (PREDNISOLONE SODIUM PHOSPHATE) [Concomitant]

REACTIONS (3)
  - Drug interaction [None]
  - Abnormal dreams [None]
  - Drug effect decreased [None]

NARRATIVE: CASE EVENT DATE: 20150121
